FAERS Safety Report 14934766 (Version 1)
Quarter: 2018Q2

REPORT INFORMATION
  Report Type: Spontaneous
  Country: DE (occurrence: DE)
  Receive Date: 20180524
  Receipt Date: 20180524
  Transmission Date: 20180711
  Serious: Yes (Other)
  Sender: FDA-Public Use
  Company Number: DE-TEVA-2018-DE-897576

PATIENT
  Sex: Male
  Weight: 85 kg

DRUGS (4)
  1. IBUDOLOR AKUT 400MG FILMTABLETTEN [Suspect]
     Active Substance: IBUPROFEN
     Dosage: DAILY DOSE: 2800 MG MILLIGRAM(S) EVERY
     Route: 048
     Dates: start: 20150524, end: 20150524
  2. TOLPERISON HCL DURA 50 MG [Suspect]
     Active Substance: TOLPERISONE HYDROCHLORIDE
     Dosage: DAILY DOSE: 1000 MG MILLIGRAM(S) EVERY
     Route: 048
     Dates: start: 20150524, end: 20150524
  3. VOLTAREN RESINAT [Suspect]
     Active Substance: DICLOFENAC
     Dosage: DAILY DOSE: 10 DF DOSAGE FORM EVERY
     Route: 048
     Dates: start: 20150524, end: 20150524
  4. PANTOPRAZOL [Suspect]
     Active Substance: PANTOPRAZOLE SODIUM
     Dosage: DAILY DOSE: 400 MG MILLIGRAM(S) EVERY
     Route: 048
     Dates: start: 20150524, end: 20150524

REACTIONS (3)
  - Intentional overdose [Unknown]
  - Fatigue [Unknown]
  - Suicide attempt [Unknown]

NARRATIVE: CASE EVENT DATE: 20150524
